FAERS Safety Report 15518859 (Version 1)
Quarter: 2018Q4

REPORT INFORMATION
  Report Type: Report from Study
  Country: US (occurrence: US)
  Receive Date: 20181017
  Receipt Date: 20181017
  Transmission Date: 20190205
  Serious: Yes (Hospitalization, Other)
  Sender: FDA-Public Use
  Company Number: US-SA-2017SA019586

PATIENT
  Age: 68 Year
  Sex: Male

DRUGS (1)
  1. INSULIN GLARGINE [Suspect]
     Active Substance: INSULIN GLARGINE
     Indication: TYPE 2 DIABETES MELLITUS
     Dosage: 85 U, BID
     Route: 058
     Dates: start: 20020131

REACTIONS (9)
  - Cerebrovascular accident [Recovered/Resolved]
  - Tumour invasion [Recovered/Resolved]
  - Fall [Unknown]
  - Blindness [Not Recovered/Not Resolved]
  - Eye disorder [Not Recovered/Not Resolved]
  - Diabetic neuropathy [Not Recovered/Not Resolved]
  - Balance disorder [Recovered/Resolved]
  - Hypertension [Unknown]
  - VIIth nerve injury [Not Recovered/Not Resolved]

NARRATIVE: CASE EVENT DATE: 2013
